FAERS Safety Report 8086358-3 (Version None)
Quarter: 2012Q1

REPORT INFORMATION
  Report Type: 
  Country: None (occurrence: None)
  Receive Date: 20120128
  Receipt Date: 20110505
  Transmission Date: 20120608
  Serious: No
  Sender: FDA-Public Use
  Company Number: US-ABBOTT-11P-163-0723766-00

PATIENT
  Sex: Female

DRUGS (4)
  1. PENTASA [Concomitant]
     Indication: INFLAMMATION
     Dosage: 5/500MG
  2. HUMIRA [Suspect]
     Indication: CROHN'S DISEASE
     Dosage: DAY ONE
     Route: 058
     Dates: start: 20110421
  3. ENTOCORT EC [Concomitant]
     Indication: CROHN'S DISEASE
  4. BEYAZ [Concomitant]
     Indication: CONTRACEPTION

REACTIONS (2)
  - INJECTION SITE HAEMATOMA [None]
  - ARTHRALGIA [None]
